FAERS Safety Report 5222856-5 (Version None)
Quarter: 2007Q1

REPORT INFORMATION
  Report Type: 
  Country: None (occurrence: None)
  Receive Date: 20070129
  Receipt Date: 20070119
  Transmission Date: 20070707
  Serious: Yes (Hospitalization)
  Sender: FDA-Public Use
  Company Number: GB-GLAXOSMITHKLINE-B0456034A

PATIENT
  Age: 78 Year
  Sex: Male

DRUGS (8)
  1. DIGOXIN [Suspect]
     Route: 048
     Dates: end: 20060713
  2. FRUSEMIDE [Suspect]
     Route: 048
     Dates: end: 20060713
  3. LISINOPRIL [Suspect]
     Route: 048
     Dates: end: 20060713
  4. SPIRONOLACTONE [Suspect]
     Route: 048
     Dates: end: 20060713
  5. DOXAZOSIN MESYLATE [Concomitant]
     Dosage: 1MG PER DAY
     Route: 048
  6. SERETIDE [Concomitant]
     Dosage: 2PUFF TWICE PER DAY
     Route: 055
  7. SIMVASTATIN [Concomitant]
     Dosage: 40MG PER DAY
     Route: 048
  8. WARFARIN SODIUM [Concomitant]

REACTIONS (3)
  - BLOOD ELECTROLYTES ABNORMAL [None]
  - BLOOD UREA ABNORMAL [None]
  - HYPERKALAEMIA [None]
